FAERS Safety Report 6415738-4 (Version None)
Quarter: 2009Q4

REPORT INFORMATION
  Report Type: 
  Country: None (occurrence: None)
  Receive Date: 20091027
  Receipt Date: 20091013
  Transmission Date: 20100525
  Serious: Yes (Death)
  Sender: FDA-Public Use
  Company Number: FR-PFIZER INC-2009282105

PATIENT
  Age: 28 Year

DRUGS (6)
  1. XANAX [Suspect]
     Indication: DEPRESSION
     Route: 048
  2. METHADONE [Suspect]
     Route: 048
  3. TERCIAN [Suspect]
     Indication: DEPRESSION
     Route: 048
  4. ZOLOFT [Concomitant]
     Indication: DEPRESSION
     Route: 048
  5. IBUPROFENE [Concomitant]
     Route: 048
  6. ANTIINFLAMMATORY/ANTIRHEUMATIC NON-STEROIDS [Concomitant]

REACTIONS (1)
  - DEATH [None]
